FAERS Safety Report 4640716-5 (Version None)
Quarter: 2005Q2

REPORT INFORMATION
  Report Type: 
  Country: None (occurrence: None)
  Receive Date: 20050325
  Receipt Date: 20041112
  Transmission Date: 20051028
  Serious: Yes (Hospitalization, Other)
  Sender: FDA-Public Use
  Company Number: 2004-04863

PATIENT
  Age: 50 Year
  Sex: Female
  Weight: 158.7 kg

DRUGS (1)
  1. FERRLECIT [Suspect]
     Indication: ANAEMIA
     Dosage: INTRAVENOUS
     Route: 042
     Dates: start: 20010101, end: 20010101

REACTIONS (2)
  - INJECTION SITE INFECTION [None]
  - INJECTION SITE PHLEBITIS [None]
